FAERS Safety Report 11308811 (Version 1)
Quarter: 2015Q3

REPORT INFORMATION
  Report Type: Spontaneous
  Country: SI (occurrence: SI)
  Receive Date: 20150724
  Receipt Date: 20150724
  Transmission Date: 20151125
  Serious: Yes (Hospitalization)
  Sender: FDA-Public Use
  Company Number: SI-MEDA-2015070047

PATIENT
  Age: 68 Year
  Sex: Female

DRUGS (4)
  1. ZOLPIDEM [Suspect]
     Active Substance: ZOLPIDEM\ZOLPIDEM TARTRATE
     Indication: INSOMNIA
     Dosage: INCREASED TO 60 MG/DAY THEN REDUCED TO 10 MG/DAY OVERNIGHT
     Dates: start: 2009
  2. LEVODOPA [Concomitant]
     Active Substance: LEVODOPA
     Dates: start: 1993
  3. ROPINIROLE. [Concomitant]
     Active Substance: ROPINIROLE
  4. PAROXETINE [Concomitant]
     Active Substance: PAROXETINE\PAROXETINE HYDROCHLORIDE

REACTIONS (10)
  - Intentional product misuse [Recovered/Resolved]
  - Hyperhidrosis [Recovered/Resolved]
  - Tachypnoea [Recovered/Resolved]
  - Dysphagia [Recovered/Resolved]
  - Dystonia [Recovered/Resolved]
  - Muscle spasms [Recovered/Resolved]
  - Dyspnoea [Recovered/Resolved]
  - Rhabdomyolysis [Recovered/Resolved]
  - Drug withdrawal syndrome [Recovered/Resolved]
  - Therapeutic response unexpected [Unknown]

NARRATIVE: CASE EVENT DATE: 2013
